FAERS Safety Report 25024306 (Version 1)
Quarter: 2025Q1

REPORT INFORMATION
  Report Type: Spontaneous
  Country: US (occurrence: None)
  Receive Date: 20250228
  Receipt Date: 20250228
  Transmission Date: 20250409
  Serious: No
  Sender: FDA-CTU
  Company Number: None

PATIENT
  Age: 68 Year
  Sex: Male
  Weight: 79 kg

DRUGS (1)
  1. CABOTEGRAVIR\RILPIVIRINE [Suspect]
     Active Substance: CABOTEGRAVIR\RILPIVIRINE
     Indication: HIV infection
     Route: 030
     Dates: start: 20241001

REACTIONS (6)
  - Abscess [None]
  - Haematoma [None]
  - Infection [None]
  - Myalgia [None]
  - Cellulitis [None]
  - Seroma [None]

NARRATIVE: CASE EVENT DATE: 20241224
